FAERS Safety Report 4344385-3 (Version None)
Quarter: 2004Q2

REPORT INFORMATION
  Report Type: 
  Country: None (occurrence: None)
  Receive Date: 20040419
  Receipt Date: 20040407
  Transmission Date: 20050107
  Serious: Yes (Death, Hospitalization)
  Sender: FDA-Public Use
  Company Number: 2004198784FR

PATIENT
  Age: 22 Year
  Sex: Male
  Weight: 52 kg

DRUGS (23)
  1. SOLU-MEDROL [Suspect]
     Dosage: SEE IMAGE
     Route: 042
     Dates: start: 20031220, end: 20040112
  2. SOLU-MEDROL [Suspect]
     Dosage: SEE IMAGE
     Route: 042
     Dates: start: 20031212
  3. RANITIDINE HYDROCHLORIDE [Suspect]
     Dosage: ORAL
     Route: 048
     Dates: start: 20031230, end: 20040102
  4. VISCERALGINE FORTE TABLETS (METAMIZOLE, TIEMONIUM METHYLSULPHATE) [Suspect]
     Dosage: 1 DF, QD, ORAL
     Route: 048
     Dates: start: 20031221, end: 20031228
  5. ALLOPURINOL [Suspect]
     Dosage: 900 MG, QD, ORAL
     Route: 048
     Dates: start: 20031221, end: 20031231
  6. CIPROFLOXACIN [Suspect]
     Dosage: 200 MG, BID, IV
     Route: 042
     Dates: start: 20031220, end: 20031227
  7. CIPROFLOXACIN [Suspect]
     Dosage: 200 MG, BID, IV
     Route: 042
     Dates: start: 20031231, end: 20040102
  8. ZOPHREN (ONDANSETRON HYDROCHLORIDE) [Suspect]
     Dosage: 16 MG, BID, IV
     Route: 042
     Dates: start: 20031220, end: 20031231
  9. ROCEPHIN [Suspect]
     Dates: start: 20031220, end: 20031227
  10. ROCEPHIN [Suspect]
     Dates: start: 20031230
  11. ZOVIRAX [Suspect]
     Dates: start: 20031230
  12. PRIMPERAN TAB [Suspect]
     Dates: start: 20031220
  13. DUPHALAC [Suspect]
     Dates: start: 20031228
  14. ACUPAN [Suspect]
     Dates: start: 20031228
  15. TRIMEBUTINE (TRIMEBUTINE) [Suspect]
     Dates: start: 20031228
  16. OMEPRAZOLE [Concomitant]
  17. ONCOVIN [Concomitant]
  18. ENDOXAN [Concomitant]
  19. CERUBIDINE [Concomitant]
  20. METHOTREXATE [Concomitant]
  21. CYTARABINE [Concomitant]
  22. VANCOMYCIN [Concomitant]
  23. OFLOXACIN [Concomitant]

REACTIONS (4)
  - CHOLESTASIS [None]
  - CYTOLYTIC HEPATITIS [None]
  - HEPATOCELLULAR DAMAGE [None]
  - SEPTIC SHOCK [None]
